FAERS Safety Report 12577345 (Version 1)
Quarter: 2016Q3

REPORT INFORMATION
  Report Type: Spontaneous
  Country: None (occurrence: US)
  Receive Date: 20160720
  Receipt Date: 20160720
  Transmission Date: 20161109
  Serious: Yes (Other)
  Sender: FDA-Public Use
  Company Number: US-KALEO, INC-2015SA175170

PATIENT
  Age: 15 Year
  Sex: Female

DRUGS (1)
  1. AUVI-Q [Suspect]
     Active Substance: EPINEPHRINE
     Indication: ANAPHYLACTIC REACTION
     Dosage: UNK, UNK, IM OR SC
     Dates: start: 20150618, end: 20150618

REACTIONS (2)
  - Loss of consciousness [None]
  - Drug ineffective [Unknown]

NARRATIVE: CASE EVENT DATE: 20150618
